FAERS Safety Report 10608094 (Version 1)
Quarter: 2014Q4

REPORT INFORMATION
  Report Type: Spontaneous
  Country: GB (occurrence: GB)
  Receive Date: 20141125
  Receipt Date: 20141125
  Transmission Date: 20150529
  Serious: Yes (Disabling)
  Sender: FDA-Public Use
  Company Number: GB-JNJFOC-20141110992

PATIENT
  Age: 84 Year
  Sex: Male
  Weight: 75 kg

DRUGS (8)
  1. ASPIRIN. [Concomitant]
     Active Substance: ASPIRIN
     Dates: start: 20140916, end: 20141015
  2. LUMIGAN [Concomitant]
     Active Substance: BIMATOPROST
     Dates: start: 20140721, end: 20141015
  3. AZELASTINE [Concomitant]
     Active Substance: AZELASTINE
     Dates: start: 20140924, end: 20140925
  4. AZOPT [Concomitant]
     Active Substance: BRINZOLAMIDE
     Dates: start: 20140818, end: 20141030
  5. LACTULOSE. [Concomitant]
     Active Substance: LACTULOSE
     Dates: start: 20140818, end: 20141012
  6. PSEUDOEPHEDRINE HYDROCHLORIDE. [Suspect]
     Active Substance: PSEUDOEPHEDRINE HYDROCHLORIDE
     Indication: PRODUCT USED FOR UNKNOWN INDICATION
     Route: 065
     Dates: start: 20140924
  7. IPRATROPIUM BROMIDE. [Concomitant]
     Active Substance: IPRATROPIUM BROMIDE
     Dates: start: 20140924, end: 20141022
  8. OPTIVIT [Concomitant]
     Active Substance: MINERALS\VITAMINS
     Dates: start: 20140818, end: 20141014

REACTIONS (1)
  - Hallucinations, mixed [Recovered/Resolved]

NARRATIVE: CASE EVENT DATE: 20141110
